FAERS Safety Report 16545329 (Version 1)
Quarter: 2019Q3

REPORT INFORMATION
  Report Type: Spontaneous
  Country: US (occurrence: US)
  Receive Date: 20190709
  Receipt Date: 20190709
  Transmission Date: 20191004
  Serious: No
  Sender: FDA-Public Use
  Company Number: US-GALDERMA-US18044764

PATIENT
  Age: 23 Year
  Sex: Female

DRUGS (5)
  1. PROACTIV DEEP CLEANSING WASH [Concomitant]
     Active Substance: SALICYLIC ACID
     Indication: RASH PUSTULAR
     Route: 061
     Dates: start: 20181011, end: 20181017
  2. PROACTIV MD ADAPALENE ACNE TREATMENT [Suspect]
     Active Substance: ADAPALENE
     Indication: RASH PUSTULAR
     Dosage: 0.1%
     Route: 061
     Dates: start: 20181011, end: 20181017
  3. PROACTIV MD DAILY OIL CONTROL SPF 30 [Suspect]
     Active Substance: AVOBENZONE\OCTISALATE\OCTOCRYLENE
     Indication: RASH PUSTULAR
     Route: 061
     Dates: start: 20181011, end: 20181017
  4. PROACTIV GREEN TEA MOISTURIZER [Concomitant]
     Active Substance: COSMETICS
     Indication: RASH PUSTULAR
     Route: 061
     Dates: start: 20181011, end: 20181017
  5. DEPO-PROVERA [Concomitant]
     Active Substance: MEDROXYPROGESTERONE ACETATE

REACTIONS (6)
  - Pain of skin [Recovering/Resolving]
  - Skin exfoliation [Recovering/Resolving]
  - Skin burning sensation [Recovering/Resolving]
  - Product use in unapproved indication [Recovering/Resolving]
  - Skin irritation [Recovering/Resolving]
  - Rosacea [Recovering/Resolving]

NARRATIVE: CASE EVENT DATE: 20181011
